FAERS Safety Report 21793549 (Version 1)
Quarter: 2022Q4

REPORT INFORMATION
  Report Type: Report from Study
  Country: IN (occurrence: IN)
  Receive Date: 20221229
  Receipt Date: 20221229
  Transmission Date: 20230112
  Serious: Yes (Hospitalization)
  Sender: FDA-Public Use
  Company Number: IN-002147023-NVSC2022IN135278

PATIENT
  Age: 58 Year
  Sex: Female

DRUGS (2)
  1. RIBOCICLIB [Suspect]
     Active Substance: RIBOCICLIB
     Indication: Postmenopause
     Dosage: 600 MG, QD
     Route: 065
     Dates: start: 20210810, end: 20221222
  2. RIBOCICLIB [Suspect]
     Active Substance: RIBOCICLIB
     Indication: Breast cancer
     Dosage: 600 MG, QD
     Route: 048
     Dates: start: 20211018

REACTIONS (3)
  - Metastases to central nervous system [Unknown]
  - Blood glucose increased [Not Recovered/Not Resolved]
  - Thyroid hormones increased [Not Recovered/Not Resolved]

NARRATIVE: CASE EVENT DATE: 20211018
